FAERS Safety Report 6284947-X (Version None)
Quarter: 2009Q3

REPORT INFORMATION
  Report Type: 
  Country: None (occurrence: None)
  Receive Date: 20090727
  Receipt Date: 20090720
  Transmission Date: 20100115
  Serious: Yes (Disabling, Other)
  Sender: FDA-Public Use
  Company Number: BR-BAYER-200911663LA

PATIENT
  Age: 53 Year
  Sex: Female

DRUGS (11)
  1. BETAFERON [Suspect]
     Indication: RELAPSING-REMITTING MULTIPLE SCLEROSIS
     Route: 058
     Dates: start: 20080101
  2. ALIVIUM [Concomitant]
     Indication: DRUG USE FOR UNKNOWN INDICATION
     Route: 065
  3. TYLENOL [Concomitant]
     Indication: DRUG USE FOR UNKNOWN INDICATION
     Route: 065
  4. TYLENOL [Concomitant]
     Route: 065
  5. TYLENOL [Concomitant]
     Route: 065
  6. TYLENOL [Concomitant]
     Route: 065
  7. CORTICOID [Concomitant]
     Indication: DRUG USE FOR UNKNOWN INDICATION
     Route: 065
  8. CORTICOID [Concomitant]
     Route: 065
  9. CORTICOID [Concomitant]
     Route: 065
  10. RELAX NOW [Concomitant]
     Indication: ANXIETY
     Route: 065
  11. OLCADIL [Concomitant]
     Indication: ANXIETY
     Route: 065

REACTIONS (15)
  - ALOPECIA [None]
  - BLOOD GLUCOSE INCREASED [None]
  - BLOOD PRESSURE DECREASED [None]
  - BLOOD PRESSURE FLUCTUATION [None]
  - DIABETES MELLITUS [None]
  - FEELING COLD [None]
  - GAIT DISTURBANCE [None]
  - JOINT STIFFNESS [None]
  - MULTIPLE SCLEROSIS RELAPSE [None]
  - ONYCHOCLASIS [None]
  - PAIN [None]
  - PARALYSIS [None]
  - PYREXIA [None]
  - RASH [None]
  - SYNCOPE [None]
